FAERS Safety Report 8790955 (Version 1)
Quarter: 2012Q4

REPORT INFORMATION
  Report Type: Spontaneous
  Country: US (occurrence: None)
  Receive Date: 20120907
  Receipt Date: 20120907
  Transmission Date: 20130627
  Serious: Yes (Other)
  Sender: FDA-Public Use
  Company Number: 2012TP000355

PATIENT
  Age: 62 Year
  Sex: Female

DRUGS (2)
  1. LIDODERM [Suspect]
     Dosage: 2 PATCH;1X;TOP
     Route: 061
  2. MULTIVITAMINS [Concomitant]

REACTIONS (2)
  - Hip arthroplasty [None]
  - Application site burn [None]
